FAERS Safety Report 17872146 (Version 1)
Quarter: 2020Q2

REPORT INFORMATION
  Report Type: Spontaneous
  Country: GB (occurrence: GB)
  Receive Date: 20200608
  Receipt Date: 20200608
  Transmission Date: 20200714
  Serious: Yes (Other)
  Sender: FDA-Public Use
  Company Number: GB-PFIZER INC-2020221230

PATIENT
  Age: 25 Year
  Sex: Female
  Weight: 91 kg

DRUGS (4)
  1. ZOPICLONE [Concomitant]
     Active Substance: ZOPICLONE
     Dosage: UNK
  2. LEVEST [ETHINYLESTRADIOL;LEVONORGESTREL] [Concomitant]
     Dosage: UNK
  3. MIRTAZAPINE. [Concomitant]
     Active Substance: MIRTAZAPINE
     Dosage: UNK
  4. VENLAFAXINE HCL [Suspect]
     Active Substance: VENLAFAXINE HYDROCHLORIDE
     Indication: BIPOLAR DISORDER
     Dosage: 37.5 MG
     Route: 048
     Dates: start: 20200315, end: 20200505

REACTIONS (4)
  - Nightmare [Recovered/Resolved]
  - Night sweats [Recovered/Resolved]
  - Abnormal dreams [Recovered/Resolved]
  - Sleep disorder [Recovered/Resolved]

NARRATIVE: CASE EVENT DATE: 20200323
